FAERS Safety Report 10784696 (Version 2)
Quarter: 2015Q1

REPORT INFORMATION
  Report Type: Spontaneous
  Country: FR (occurrence: None)
  Receive Date: 20150209
  Receipt Date: 20150302
  Transmission Date: 20150721
  Serious: Yes (Hospitalization)
  Sender: FDA-Public Use
  Company Number: NL01PV15_38429

PATIENT
  Age: 78 Year
  Sex: Male
  Weight: 100 kg

DRUGS (5)
  1. LASILIX SPECIAL (FUROSEMIDE) [Concomitant]
  2. COUMADIN [Concomitant]
     Active Substance: WARFARIN SODIUM
  3. ZOLPIDEM BIOGARAN [Suspect]
     Active Substance: ZOLPIDEM\ZOLPIDEM TARTRATE
     Indication: PRODUCT USED FOR UNKNOWN INDICATION
     Dosage: 10 MG (FILM-COATED TABLET)
     Route: 048
     Dates: end: 201501
  4. AMOXICILLINE [Suspect]
     Active Substance: AMOXICILLIN
     Indication: INFECTION
     Route: 048
     Dates: start: 201407
  5. PERINDOPRIL ARGININE [Concomitant]
     Active Substance: PERINDOPRIL ARGININE

REACTIONS (1)
  - Dermatitis allergic [None]

NARRATIVE: CASE EVENT DATE: 2014
